FAERS Safety Report 6336677-3 (Version None)
Quarter: 2009Q3

REPORT INFORMATION
  Report Type: 
  Country: None (occurrence: None)
  Receive Date: 20090901
  Receipt Date: 20090827
  Transmission Date: 20100115
  Serious: Yes (Hospitalization)
  Sender: FDA-Public Use
  Company Number: GB-BAYER-200930059GPV

PATIENT
  Age: 23 Year
  Sex: Female

DRUGS (5)
  1. ASPIRIN [Suspect]
     Indication: ISCHAEMIC STROKE
  2. ASPIRIN [Suspect]
  3. DIPYRIDAMOLE [Suspect]
     Indication: ISCHAEMIC STROKE
  4. PARACETAMOL [Concomitant]
     Indication: HEADACHE
  5. SUMATRIPTAN SUCCINATE [Concomitant]
     Indication: HEADACHE
     Dosage: UNIT DOSE: 25 MG
     Route: 048

REACTIONS (2)
  - GINGIVAL BLEEDING [None]
  - THROMBOCYTOPENIA [None]
